FAERS Safety Report 5367140-4 (Version None)
Quarter: 2007Q2

REPORT INFORMATION
  Report Type: 
  Country: None (occurrence: None)
  Receive Date: 20070622
  Receipt Date: 20061222
  Transmission Date: 20071010
  Serious: No
  Sender: FDA-Public Use
  Company Number: US-BRISTOL-MYERS SQUIBB COMPANY-13581962

PATIENT
  Age: 77 Year
  Sex: Female

DRUGS (7)
  1. SINEMET [Suspect]
     Indication: PARKINSON'S DISEASE
     Route: 048
     Dates: start: 20051128
  2. PERGOLIDE MESYLATE [Concomitant]
     Dates: start: 20061116
  3. LIPITOR [Concomitant]
     Dates: start: 20061115
  4. AGGRENOX [Concomitant]
     Dates: start: 20061115
  5. PROPRANOLOL HYDROCHLORIDE [Concomitant]
     Dates: start: 20061115
  6. SEROQUEL [Concomitant]
     Dates: start: 20061115
  7. ALPRAZOLAM [Concomitant]
     Dates: start: 20061115

REACTIONS (1)
  - ADVERSE DRUG REACTION [None]
